FAERS Safety Report 17807239 (Version 8)
Quarter: 2020Q2

REPORT INFORMATION
  Report Type: Report from Study
  Country: DE (occurrence: DE)
  Receive Date: 20200520
  Receipt Date: 20200620
  Transmission Date: 20200714
  Serious: Yes (Life-Threatening, Hospitalization, Other)
  Sender: FDA-Public Use
  Company Number: DE-AMGEN-DEUCT2020080334

PATIENT
  Age: 60 Year
  Sex: Male
  Weight: 100 kg

DRUGS (22)
  1. DEXAMETHASONE. [Suspect]
     Active Substance: DEXAMETHASONE
     Dosage: 28 MILLIGRAM, PER CHEMO REGIM
     Route: 048
     Dates: start: 20200429
  2. NOVAMINSULFON [Concomitant]
     Active Substance: METAMIZOLE
     Indication: PAIN
  3. ESPUMISAN [SIMETICONE] [Concomitant]
     Indication: FLATULENCE
     Dosage: 160 MILLIGRAM, AS NECESSARY
     Route: 048
     Dates: start: 20200513
  4. INNOHEP [Concomitant]
     Active Substance: TINZAPARIN SODIUM
     Indication: THROMBOSIS PROPHYLAXIS
     Dosage: 4500 INTERNATIONAL UNIT, QD
     Route: 058
     Dates: start: 20200429
  5. ELOTUZUMAB. [Suspect]
     Active Substance: ELOTUZUMAB
     Indication: PLASMA CELL MYELOMA
     Dosage: 10 MILLIGRAM/KILOGRAM
     Route: 041
     Dates: start: 20200429
  6. PIPERACILLIN AND TAZOBACTAM [Concomitant]
     Active Substance: PIPERACILLIN SODIUM\TAZOBACTAM SODIUM
     Indication: PNEUMONIA
     Dosage: (4/0.5) GRAM, TID
     Route: 042
     Dates: start: 20200513, end: 20200516
  7. NOVAMINSULFON [Concomitant]
     Active Substance: METAMIZOLE
     Indication: PULMONARY SEPSIS
  8. LENALIDOMIDE [Suspect]
     Active Substance: LENALIDOMIDE
     Indication: PLASMA CELL MYELOMA
     Dosage: 25 MILLIGRAM, PER CHEMO REGIM
     Route: 048
     Dates: start: 20200429
  9. DEXAMETHASONE. [Suspect]
     Active Substance: DEXAMETHASONE
     Indication: PLASMA CELL MYELOMA
     Dosage: 8 MILLIGRAM, PER CHEMO REGIM
     Route: 040
     Dates: start: 20200429
  10. OXYGEN. [Concomitant]
     Active Substance: OXYGEN
     Indication: PULMONARY SEPSIS
     Dosage: UNK
  11. PREGABADOR [Concomitant]
     Active Substance: PREGABALIN
     Indication: PROPHYLAXIS
     Dosage: 75 MILLIGRAM (1-0-1-0)
     Route: 048
     Dates: start: 20200511
  12. TAVEGIL [CLEMASTINE FUMARATE] [Concomitant]
     Active Substance: CLEMASTINE FUMARATE
     Indication: PROPHYLAXIS
     Dosage: 2 MILLIGRAM (1-0-0-0)
     Route: 042
     Dates: start: 20200506
  13. CARFILZOMIB [Suspect]
     Active Substance: CARFILZOMIB
     Dosage: 36 MILLIGRAM/SQ. METER, PER CHEMO REGIM
     Route: 041
     Dates: start: 20200506
  14. NOVAMINSULFON [Concomitant]
     Active Substance: METAMIZOLE
     Indication: PYREXIA
     Dosage: 1 GRAM, AS NECESSARY AND 500 MG/ML (40-40-40-40)
     Dates: start: 20200429
  15. OXYGESIC [Concomitant]
     Active Substance: OXYCODONE
     Indication: PAIN
     Dosage: 50 MILLIGRAM
     Route: 042
     Dates: start: 20200509
  16. SALBUTAMOL [Concomitant]
     Active Substance: ALBUTEROL
     Indication: PULMONARY SEPSIS
  17. SALBUTAMOL [Concomitant]
     Active Substance: ALBUTEROL
     Indication: PNEUMONIA
     Dosage: 1.25 GRAM, QID
     Route: 042
     Dates: start: 20200514
  18. LASIX [Concomitant]
     Active Substance: FUROSEMIDE
     Dosage: 40 MILLIGRAM, AS NECESSARY
     Route: 042
     Dates: start: 20200514, end: 20200514
  19. CARFILZOMIB [Suspect]
     Active Substance: CARFILZOMIB
     Indication: PLASMA CELL MYELOMA
     Dosage: 20 MILLIGRAM/SQ. METER, PER CHEMO REGIM
     Route: 041
     Dates: start: 20200429
  20. VALTREX [Concomitant]
     Active Substance: VALACYCLOVIR HYDROCHLORIDE
     Indication: ANTIVIRAL PROPHYLAXIS
     Dosage: 500 MILLIGRAM, BID
     Route: 048
     Dates: start: 20200429
  21. PANTOPRAZOL [PANTOPRAZOLE] [Concomitant]
     Active Substance: PANTOPRAZOLE
     Indication: PROPHYLAXIS AGAINST GASTROINTESTINAL ULCER
     Dosage: 40 MILLIGRAM
     Dates: start: 20200429
  22. NACL [Concomitant]
     Active Substance: SODIUM CHLORIDE
     Indication: PROPHYLAXIS
     Dosage: 80 MILLILITER PER HOUR
     Route: 042
     Dates: start: 20200502, end: 20200515

REACTIONS (1)
  - Pulmonary sepsis [Recovering/Resolving]

NARRATIVE: CASE EVENT DATE: 20200515
